FAERS Safety Report 10283561 (Version 1)
Quarter: 2014Q3

REPORT INFORMATION
  Report Type: Report from Study
  Country: US (occurrence: US)
  Receive Date: 20140708
  Receipt Date: 20140708
  Transmission Date: 20150326
  Serious: Yes (Hospitalization)
  Sender: FDA-Public Use
  Company Number: US-JNJFOC-20140700326

PATIENT
  Age: 5 Day
  Sex: Male
  Weight: 4.54 kg

DRUGS (7)
  1. RISPERIDAL [Suspect]
     Active Substance: RISPERIDONE
     Indication: DEPRESSION
     Dosage: EXPOSURE TIME IN 4 TH GESTATIONAL WEEK.
     Route: 064
     Dates: end: 20121215
  2. CYMBALTA [Suspect]
     Active Substance: DULOXETINE HYDROCHLORIDE
     Indication: DEPRESSION
     Dosage: EXPOSURE TIME IN 39X2/7TH GESTATIONAL WEEK.
     Route: 064
  3. WELLBUTRIN [Suspect]
     Active Substance: BUPROPION HYDROCHLORIDE
     Indication: DEPRESSION
     Dosage: EXPOSURE TIME IN 7TH GESTATIONAL WEEK.
     Route: 064
     Dates: end: 20130106
  4. LAMICTAL [Suspect]
     Active Substance: LAMOTRIGINE
     Indication: DEPRESSION
     Dosage: EXPOSURE TIME IN 39X2/7TH GESTATIONAL WEEK.
     Route: 064
     Dates: end: 201303
  5. LAMICTAL [Suspect]
     Active Substance: LAMOTRIGINE
     Indication: DEPRESSION
     Route: 064
     Dates: start: 201303
  6. ABILIFY [Suspect]
     Active Substance: ARIPIPRAZOLE
     Indication: DEPRESSION
     Dosage: EXPOSURE TIME IN 39X2/7TH GESTATIONAL WEEK.
     Route: 064
  7. PRENATAL VITAMIN [Concomitant]
     Active Substance: VITAMINS
     Indication: PREGNANCY
     Dosage: EXPOSURE TIME IN 7TH GESTATIONAL WEEK.
     Route: 064

REACTIONS (2)
  - Foetal exposure during pregnancy [Recovered/Resolved]
  - Enterovirus infection [Unknown]

NARRATIVE: CASE EVENT DATE: 20121117
